FAERS Safety Report 6911740-4 (Version None)
Quarter: 2010Q3

REPORT INFORMATION
  Report Type: 
  Country: None (occurrence: None)
  Receive Date: 20100806
  Receipt Date: 20100630
  Transmission Date: 20110219
  Serious: Yes (Hospitalization)
  Sender: FDA-Public Use
  Company Number: PHHO2009JP07533

PATIENT
  Sex: Male
  Weight: 57 kg

DRUGS (17)
  1. MYCOPHENOLATE MOFETIL [Suspect]
     Indication: RENAL TRANSPLANT
     Dosage: 2000 MG/DAY
     Route: 048
     Dates: start: 20090409, end: 20091026
  2. MYCOPHENOLATE MOFETIL [Suspect]
     Dosage: 1000 MG/DAY
     Route: 048
     Dates: start: 20091027
  3. NEORAL [Suspect]
     Indication: RENAL TRANSPLANT
     Dosage: 175 MG/DAY
     Route: 048
     Dates: start: 20090413
  4. SIMULECT [Suspect]
     Indication: RENAL TRANSPLANT
     Dosage: 20 MG, ONCE/SINGLE (DAY 0)
     Route: 042
     Dates: start: 20090408, end: 20090408
  5. SIMULECT [Suspect]
     Dosage: 20 MG, ONCE/SINGLE (DAY 4)
     Route: 042
     Dates: start: 20090412, end: 20090412
  6. VOLTAREN [Suspect]
     Indication: BACK PAIN
     Dosage: 4 DF /DAY
     Route: 048
     Dates: start: 20090530, end: 20090615
  7. MEDROL [Suspect]
     Indication: RENAL TRANSPLANT
     Dosage: 4 MG/DAY
     Route: 048
     Dates: start: 20090417
  8. TAGAMET [Concomitant]
  9. CALSLOT [Concomitant]
  10. URINORM [Concomitant]
  11. COTRIM [Concomitant]
  12. ZOVIRAX [Concomitant]
  13. SOLITA T [Concomitant]
  14. CEFAMEZIN [Concomitant]
  15. PROCAINAMIDE HCL [Concomitant]
  16. ISODINE [Concomitant]
  17. HIBITANE [Concomitant]

REACTIONS (2)
  - BLOOD CREATININE INCREASED [None]
  - CYTOMEGALOVIRUS VIRAEMIA [None]
